FAERS Safety Report 4434848-4 (Version None)
Quarter: 2004Q3

REPORT INFORMATION
  Report Type: 
  Country: None (occurrence: None)
  Receive Date: 20040726
  Receipt Date: 20040316
  Transmission Date: 20050211
  Serious: No
  Sender: FDA-Public Use
  Company Number: USA040259966

PATIENT
  Age: 87 Year
  Sex: Female

DRUGS (6)
  1. FORTEO [Suspect]
     Indication: OSTEOPOROSIS
     Dosage: 20 UG/DAY
     Dates: start: 20030501
  2. CELEBREX [Concomitant]
  3. LEVOXYL [Concomitant]
  4. COZAAR (LORSARTAN POTASSIUM) [Concomitant]
  5. LIPITOR [Concomitant]
  6. OXYBUTYNIN HYDROCHLORIDE [Concomitant]

REACTIONS (1)
  - BLOOD ALKALINE PHOSPHATASE INCREASED [None]
